FAERS Safety Report 24997980 (Version 1)
Quarter: 2025Q1

REPORT INFORMATION
  Report Type: Spontaneous
  Country: US (occurrence: US)
  Receive Date: 20250222
  Receipt Date: 20250222
  Transmission Date: 20250408
  Serious: No
  Sender: SANOFI AVENTIS
  Company Number: US-SA-2025SA043619

PATIENT
  Age: 51 Year
  Sex: Female

DRUGS (1)
  1. KEVZARA [Suspect]
     Active Substance: SARILUMAB
     Indication: Alopecia areata
     Dosage: 200 MG, QOW
     Route: 058
     Dates: start: 202501, end: 2025

REACTIONS (4)
  - Condition aggravated [Unknown]
  - Rhinalgia [Unknown]
  - Stomatitis [Unknown]
  - Product use in unapproved indication [Unknown]

NARRATIVE: CASE EVENT DATE: 20250101
